FAERS Safety Report 9918861 (Version 2)
Quarter: 2014Q1

REPORT INFORMATION
  Report Type: Spontaneous
  Country: US (occurrence: US)
  Receive Date: 20140224
  Receipt Date: 20140328
  Transmission Date: 20141002
  Serious: Yes (Hospitalization, Other)
  Sender: FDA-Public Use
  Company Number: US-BAYER-2014-028321

PATIENT
  Age: 21 Year
  Sex: Female
  Weight: 104.31 kg

DRUGS (2)
  1. MIRENA [Suspect]
     Indication: CONTRACEPTION
     Dosage: 20 MCG/24HR, CONT
     Route: 015
     Dates: start: 20090401, end: 20091111
  2. PRENATAL VITAMINS [Concomitant]

REACTIONS (11)
  - Device expulsion [None]
  - Genital haemorrhage [None]
  - Ectopic pregnancy with contraceptive device [None]
  - Drug ineffective [None]
  - Adnexa uteri pain [None]
  - Abdominal pain [None]
  - Injury [None]
  - Emotional distress [None]
  - Depression [None]
  - Anxiety [None]
  - Feeling abnormal [None]
